FAERS Safety Report 12214465 (Version 1)
Quarter: 2016Q1

REPORT INFORMATION
  Report Type: Spontaneous
  Country: US (occurrence: US)
  Receive Date: 20160328
  Receipt Date: 20160328
  Transmission Date: 20160526
  Serious: Yes (Other)
  Sender: FDA-Public Use
  Company Number: US-BRISTOL-MYERS SQUIBB COMPANY-BMS-2016-023232

PATIENT
  Sex: Male
  Weight: 68.27 kg

DRUGS (1)
  1. BARACLUDE [Suspect]
     Active Substance: ENTECAVIR
     Indication: HEPATIC ENZYME INCREASED
     Dosage: 0.5 MG, QD
     Route: 048

REACTIONS (3)
  - Bile duct obstruction [Unknown]
  - Off label use [Unknown]
  - Liver disorder [Unknown]
